FAERS Safety Report 9834951 (Version 1)
Quarter: 2014Q1

REPORT INFORMATION
  Report Type: Spontaneous
  Country: US (occurrence: US)
  Receive Date: 20140122
  Receipt Date: 20140122
  Transmission Date: 20141002
  Serious: No
  Sender: FDA-Public Use
  Company Number: US-BAYER-2014-011024

PATIENT
  Age: 77 Year
  Sex: Female

DRUGS (1)
  1. ALEVE CAPLET [Suspect]
     Indication: BRONCHITIS
     Route: 048

REACTIONS (2)
  - Therapeutic response unexpected [None]
  - Off label use [None]
